FAERS Safety Report 21652644 (Version 1)
Quarter: 2022Q4

REPORT INFORMATION
  Report Type: Spontaneous
  Country: US (occurrence: None)
  Receive Date: 20221124
  Receipt Date: 20221124
  Transmission Date: 20230113
  Serious: Yes (Death)
  Sender: FDA-Public Use
  Company Number: None

PATIENT
  Sex: Male

DRUGS (2)
  1. RETACRIT [Suspect]
     Active Substance: EPOETIN ALFA-EPBX
     Indication: Myelodysplastic syndrome
     Dosage: FREQUENCY : WEEKLY;?
     Route: 058
     Dates: start: 202206
  2. INQOVI [Suspect]
     Active Substance: CEDAZURIDINE\DECITABINE

REACTIONS (1)
  - Death [None]

NARRATIVE: CASE EVENT DATE: 20221115
